FAERS Safety Report 15920367 (Version 2)
Quarter: 2019Q1

REPORT INFORMATION
  Report Type: Report from Study
  Country: RO (occurrence: RO)
  Receive Date: 20190205
  Receipt Date: 20190325
  Transmission Date: 20190417
  Serious: No
  Sender: FDA-Public Use
  Company Number: RO-GILEAD-2019-0388838

PATIENT
  Age: 75 Year
  Sex: Female

DRUGS (7)
  1. SORTIS [Concomitant]
     Active Substance: ATORVASTATIN
  2. ASPIRIN CARDIO [Concomitant]
     Active Substance: ASPIRIN
  3. METFOGAMMA [Concomitant]
     Active Substance: METFORMIN HYDROCHLORIDE
  4. LEDIPASVIR/SOFOSBUVIR [Suspect]
     Active Substance: LEDIPASVIR\SOFOSBUVIR
     Indication: HEPATITIS C
     Dosage: 1 DF, QD
     Route: 048
     Dates: start: 20190110
  5. LEDIPASVIR/SOFOSBUVIR [Suspect]
     Active Substance: LEDIPASVIR\SOFOSBUVIR
     Indication: HEPATIC CIRRHOSIS
  6. ATACAND [Concomitant]
     Active Substance: CANDESARTAN CILEXETIL
  7. METOPROLOL. [Concomitant]
     Active Substance: METOPROLOL

REACTIONS (1)
  - Transaminases decreased [Not Recovered/Not Resolved]

NARRATIVE: CASE EVENT DATE: 20190129
